FAERS Safety Report 8336074-5 (Version None)
Quarter: 2012Q2

REPORT INFORMATION
  Report Type: 
  Country: None (occurrence: None)
  Receive Date: 20120501
  Receipt Date: 20120501
  Transmission Date: 20120825
  Serious: Yes (Hospitalization)
  Sender: FDA-Public Use
  Company Number: None

PATIENT
  Age: 87 Year
  Sex: Female
  Weight: 63.8 kg

DRUGS (10)
  1. TRANDOLAPRIL [Concomitant]
  2. NAMENDA [Concomitant]
  3. ARICEPT [Concomitant]
  4. PANTOPRAZOLE [Concomitant]
  5. PRAVACHOL [Concomitant]
  6. METOPROLOL TARTRATE [Concomitant]
  7. AMIODARONE HCL [Concomitant]
  8. COUMADIN [Suspect]
     Indication: ATRIAL FIBRILLATION
     Dosage: 2MG Q S T W TH SAT PO : 4MG Q MONDAY PO CHRONIC
     Route: 048
  9. COUMADIN [Suspect]
     Indication: EMBOLISM VENOUS
     Dosage: 2MG Q S T W TH SAT PO : 4MG Q MONDAY PO CHRONIC
     Route: 048
  10. PROZAC [Concomitant]

REACTIONS (7)
  - INTERNATIONAL NORMALISED RATIO INCREASED [None]
  - THROMBOCYTOPENIA [None]
  - FALL [None]
  - COAGULOPATHY [None]
  - GASTROINTESTINAL HAEMORRHAGE [None]
  - ANAEMIA [None]
  - TRANSAMINASES INCREASED [None]
